FAERS Safety Report 21385768 (Version 1)
Quarter: 2022Q3

REPORT INFORMATION
  Report Type: Spontaneous
  Country: US (occurrence: None)
  Receive Date: 20220927
  Receipt Date: 20220927
  Transmission Date: 20221026
  Serious: No
  Sender: FDA-Public Use
  Company Number: None

PATIENT
  Age: 84 Year
  Sex: Female
  Weight: 63.5 kg

DRUGS (1)
  1. PROLIA [Suspect]
     Active Substance: DENOSUMAB
     Indication: Osteoporosis
     Dosage: OTHER FREQUENCY : TWO A YEAR;?
     Dates: start: 2014

REACTIONS (6)
  - Pruritus [None]
  - Erythema [None]
  - Condition aggravated [None]
  - Post procedural complication [None]
  - Rash macular [None]
  - Pain [None]

NARRATIVE: CASE EVENT DATE: 20220808
